FAERS Safety Report 24641782 (Version 1)
Quarter: 2024Q4

REPORT INFORMATION
  Report Type: Spontaneous
  Country: CA (occurrence: CA)
  Receive Date: 20241120
  Receipt Date: 20241120
  Transmission Date: 20250115
  Serious: Yes (Hospitalization)
  Sender: PFIZER
  Company Number: CA-PFIZER INC-202400304161

PATIENT
  Age: 64 Year
  Sex: Female

DRUGS (13)
  1. CALCIUM CHLORIDE [Suspect]
     Active Substance: CALCIUM CHLORIDE
     Indication: Vitamin supplementation
     Dosage: UNK, SINGLE
     Route: 041
  2. DEXPANTHENOL [Suspect]
     Active Substance: DEXPANTHENOL
     Indication: Vitamin supplementation
     Dosage: UNK, SINGLE
     Route: 041
  3. LEVOCARNITINE [Suspect]
     Active Substance: LEVOCARNITINE
     Indication: Vitamin supplementation
     Dosage: UNK, SINGLE
     Route: 041
  4. GLUTATHIONE [Suspect]
     Active Substance: GLUTATHIONE
     Indication: Vitamin supplementation
     Dosage: UNK, SINGLE
     Route: 041
  5. MAGNESIUM [Suspect]
     Active Substance: MAGNESIUM
     Indication: Vitamin supplementation
     Dosage: UNK, SINGLE
     Route: 041
  6. VITAMINS NOS [Suspect]
     Active Substance: VITAMINS
     Indication: Vitamin supplementation
     Dosage: UNK, SINGLE
  7. NIACINAMIDE [Suspect]
     Active Substance: NIACINAMIDE
     Indication: Vitamin supplementation
     Dosage: UNK, SINGLE
     Route: 041
  8. PYRIDOXINE [Suspect]
     Active Substance: PYRIDOXINE
     Indication: Vitamin supplementation
     Dosage: UNK, SINGLE
     Route: 041
  9. SELENIUM [Suspect]
     Active Substance: SELENIUM
     Indication: Vitamin supplementation
     Dosage: UNK, SINGLE
     Route: 041
  10. STERILE WATER [Suspect]
     Active Substance: WATER
     Indication: Vitamin supplementation
     Dosage: UNK, SINGLE
  11. THIAMINE HYDROCHLORIDE [Suspect]
     Active Substance: THIAMINE HYDROCHLORIDE
     Indication: Vitamin supplementation
     Dosage: UNK, SINGLE (SOLUTION INTRAMUSCULAR)
     Route: 041
  12. VITAMIN C [Suspect]
     Active Substance: ASCORBIC ACID
     Indication: Vitamin supplementation
     Dosage: UNK, SINGLE
     Route: 041
  13. ZINC [Suspect]
     Active Substance: ZINC
     Indication: Vitamin supplementation
     Dosage: UNK, SINGLE
     Route: 041

REACTIONS (4)
  - Alanine aminotransferase increased [Recovering/Resolving]
  - Malaise [Recovering/Resolving]
  - Pyrexia [Recovering/Resolving]
  - White blood cell count increased [Recovering/Resolving]
